FAERS Safety Report 5885173-6 (Version None)
Quarter: 2008Q3

REPORT INFORMATION
  Report Type: 
  Country: None (occurrence: None)
  Receive Date: 20080915
  Receipt Date: 20080915
  Transmission Date: 20090109
  Serious: Yes (Life-Threatening, Disabling)
  Sender: FDA-Public Use
  Company Number: None

PATIENT
  Age: 51 Year
  Sex: Male
  Weight: 99.7913 kg

DRUGS (2)
  1. PEG-INTRON [Suspect]
     Indication: HEPATITIS C
     Dosage: VARIES ONCE A WEEK IV
     Route: 042
     Dates: start: 20020101, end: 20030201
  2. RIBAVIRIN [Suspect]
     Indication: HEPATITIS C
     Dosage: 3 PILLS DAILY PO
     Route: 048
     Dates: start: 20020101, end: 20030201

REACTIONS (5)
  - AUTOIMMUNE HEPATITIS [None]
  - CHOLECYSTECTOMY [None]
  - DIABETES MELLITUS [None]
  - EARLY RETIREMENT [None]
  - MALAISE [None]
